FAERS Safety Report 9551654 (Version 1)
Quarter: 2013Q3

REPORT INFORMATION
  Report Type: Spontaneous
  Country: US (occurrence: US)
  Receive Date: 20130925
  Receipt Date: 20130925
  Transmission Date: 20140515
  Serious: Yes (Other)
  Sender: FDA-Public Use
  Company Number: US-MYLANLABS-2013S1012068

PATIENT
  Age: 66 Year
  Sex: Female
  Weight: 81.65 kg

DRUGS (5)
  1. ENALAPRIL MALEATE TABLETS, USP [Suspect]
     Indication: BLOOD PRESSURE INCREASED
     Route: 048
     Dates: end: 20130521
  2. AMLODIPINE [Concomitant]
     Indication: BLOOD PRESSURE INCREASED
     Route: 048
  3. LEVOTHYROXINE [Concomitant]
     Indication: HYPOTHYROIDISM
     Route: 048
  4. VICODIN [Concomitant]
     Indication: ARTHRALGIA
     Dosage: FOR BACK PAIN AND ARTHRITIC PAINS
     Route: 048
  5. ALBUTEROL SULFATE INHALATION SOLUTION [Concomitant]
     Indication: CHRONIC OBSTRUCTIVE PULMONARY DISEASE
     Route: 055

REACTIONS (2)
  - Angioedema [Recovering/Resolving]
  - Dry mouth [Recovering/Resolving]
